FAERS Safety Report 12727473 (Version 18)
Quarter: 2017Q4

REPORT INFORMATION
  Report Type: Spontaneous
  Country: CA (occurrence: CA)
  Receive Date: 20160909
  Receipt Date: 20171212
  Transmission Date: 20180320
  Serious: Yes (Other)
  Sender: FDA-Public Use
  Company Number: CA-ROCHE-1826170

PATIENT
  Age: 56 Year
  Sex: Female

DRUGS (31)
  1. XOLAIR [Suspect]
     Active Substance: OMALIZUMAB
     Route: 058
     Dates: start: 20160830
  2. XOLAIR [Suspect]
     Active Substance: OMALIZUMAB
     Route: 058
     Dates: start: 2016
  3. XOLAIR [Suspect]
     Active Substance: OMALIZUMAB
     Route: 058
     Dates: start: 20170526
  4. SINGULAIR [Concomitant]
     Active Substance: MONTELUKAST SODIUM
     Indication: PRODUCT USED FOR UNKNOWN INDICATION
     Route: 065
  5. ADVAIR HFA [Concomitant]
     Active Substance: FLUTICASONE PROPIONATE\SALMETEROL XINAFOATE
     Indication: PRODUCT USED FOR UNKNOWN INDICATION
     Dosage: UNK
     Route: 065
  6. XOLAIR [Suspect]
     Active Substance: OMALIZUMAB
     Route: 058
     Dates: start: 20160521
  7. XOLAIR [Suspect]
     Active Substance: OMALIZUMAB
     Route: 058
     Dates: start: 20161114
  8. XOLAIR [Suspect]
     Active Substance: OMALIZUMAB
     Route: 058
     Dates: start: 20171128, end: 20171128
  9. VENTOLIN [Concomitant]
     Active Substance: ALBUTEROL SULFATE
     Indication: PRODUCT USED FOR UNKNOWN INDICATION
     Dosage: UNK
     Route: 065
     Dates: end: 20160422
  10. XOLAIR [Suspect]
     Active Substance: OMALIZUMAB
     Route: 058
     Dates: start: 20160818
  11. XOLAIR [Suspect]
     Active Substance: OMALIZUMAB
     Route: 058
     Dates: start: 20170419
  12. XOLAIR [Suspect]
     Active Substance: OMALIZUMAB
     Route: 058
     Dates: start: 20170724
  13. XOLAIR [Suspect]
     Active Substance: OMALIZUMAB
     Route: 058
     Dates: start: 20160816
  14. XOLAIR [Suspect]
     Active Substance: OMALIZUMAB
     Route: 058
     Dates: start: 20170807
  15. XOLAIR [Suspect]
     Active Substance: OMALIZUMAB
     Route: 058
     Dates: start: 20171030
  16. AMOXIL [Suspect]
     Active Substance: AMOXICILLIN
     Indication: SINUSITIS
     Route: 065
     Dates: start: 20160201
  17. FLU VACCINE [Suspect]
     Active Substance: INFLUENZA VIRUS VACCINE
     Indication: INFLUENZA
     Route: 065
     Dates: start: 20161123
  18. XOLAIR [Suspect]
     Active Substance: OMALIZUMAB
     Route: 058
     Dates: start: 20160118
  19. XOLAIR [Suspect]
     Active Substance: OMALIZUMAB
     Route: 058
     Dates: start: 20170220
  20. XOLAIR [Suspect]
     Active Substance: OMALIZUMAB
     Route: 058
     Dates: start: 20170612
  21. XOLAIR [Suspect]
     Active Substance: OMALIZUMAB
     Indication: ASTHMA
     Route: 058
     Dates: start: 20141024
  22. XOLAIR [Suspect]
     Active Substance: OMALIZUMAB
     Route: 058
     Dates: start: 20160913
  23. XOLAIR [Suspect]
     Active Substance: OMALIZUMAB
     Route: 058
     Dates: start: 20170502
  24. XOLAIR [Suspect]
     Active Substance: OMALIZUMAB
     Route: 058
     Dates: start: 20170821
  25. PREDNISONE. [Concomitant]
     Active Substance: PREDNISONE
     Indication: PRODUCT USED FOR UNKNOWN INDICATION
     Dosage: (5 DAY COURSE)
     Route: 065
     Dates: start: 20161123
  26. XOLAIR [Suspect]
     Active Substance: OMALIZUMAB
     Route: 058
     Dates: start: 20160509
  27. XOLAIR [Suspect]
     Active Substance: OMALIZUMAB
     Route: 058
     Dates: start: 20170515
  28. XOLAIR [Suspect]
     Active Substance: OMALIZUMAB
     Route: 058
     Dates: start: 20170626
  29. XOLAIR [Suspect]
     Active Substance: OMALIZUMAB
     Route: 058
     Dates: start: 20160426
  30. XOLAIR [Suspect]
     Active Substance: OMALIZUMAB
     Route: 058
     Dates: start: 20160719
  31. XOLAIR [Suspect]
     Active Substance: OMALIZUMAB
     Route: 058
     Dates: start: 20160802

REACTIONS (35)
  - Asthma [Unknown]
  - Myalgia [Recovering/Resolving]
  - Nasopharyngitis [Unknown]
  - Nausea [Unknown]
  - Nasal polyps [Unknown]
  - Respiratory disorder [Unknown]
  - Oropharyngeal pain [Unknown]
  - Sputum discoloured [Recovered/Resolved]
  - Abdominal pain [Unknown]
  - Drug effect decreased [Unknown]
  - Heart rate increased [Unknown]
  - Dyspnoea [Unknown]
  - Weight decreased [Unknown]
  - Weight increased [Unknown]
  - Injection site pain [Unknown]
  - Injection site induration [Unknown]
  - Rhinorrhoea [Recovering/Resolving]
  - Injection site pain [Unknown]
  - Sleep disorder [Unknown]
  - Respiratory rate increased [Unknown]
  - Sinusitis [Unknown]
  - Vomiting [Unknown]
  - Respiratory distress [Unknown]
  - Productive cough [Unknown]
  - Nasal congestion [Recovered/Resolved]
  - Pain in extremity [Recovered/Resolved]
  - Blood pressure increased [Unknown]
  - Sinus congestion [Unknown]
  - Diarrhoea [Unknown]
  - Drug intolerance [Unknown]
  - Inappropriate schedule of drug administration [Unknown]
  - Headache [Unknown]
  - Cough [Unknown]
  - Pulmonary function test decreased [Unknown]
  - Wheezing [Unknown]

NARRATIVE: CASE EVENT DATE: 201505
